FAERS Safety Report 24910124 (Version 2)
Quarter: 2025Q1

REPORT INFORMATION
  Report Type: Spontaneous
  Country: US (occurrence: US)
  Receive Date: 20250131
  Receipt Date: 20250205
  Transmission Date: 20250408
  Serious: No
  Sender: BIOVITRUM
  Company Number: US-BIOVITRUM-2025-US-001291

PATIENT
  Age: 34 Year
  Sex: Female

DRUGS (1)
  1. VONJO [Suspect]
     Active Substance: PACRITINIB
     Indication: Essential thrombocythaemia
     Route: 048
     Dates: start: 20250124

REACTIONS (4)
  - Abdominal pain [Unknown]
  - Off label use [Recovered/Resolved]
  - Diarrhoea [Unknown]
  - Product dose omission issue [Unknown]

NARRATIVE: CASE EVENT DATE: 20250124
